FAERS Safety Report 8264680-5 (Version None)
Quarter: 2012Q2

REPORT INFORMATION
  Report Type: 
  Country: None (occurrence: None)
  Receive Date: 20120406
  Receipt Date: 20120404
  Transmission Date: 20120825
  Serious: Yes (Death, Other)
  Sender: FDA-Public Use
  Company Number: NL-JNJFOC-20120402684

PATIENT

DRUGS (7)
  1. CLOPIDOGREL [Suspect]
     Route: 065
  2. ASPIRIN [Suspect]
     Indication: PERCUTANEOUS CORONARY INTERVENTION
     Route: 065
  3. CLOPIDOGREL [Suspect]
     Indication: PERCUTANEOUS CORONARY INTERVENTION
     Route: 065
  4. HEPARIN SODIUM [Suspect]
     Indication: PERCUTANEOUS CORONARY INTERVENTION
     Route: 040
  5. REOPRO [Suspect]
     Indication: PERCUTANEOUS CORONARY INTERVENTION
     Route: 042
  6. SIROLIMUS [Suspect]
     Indication: CORONARY ARTERIAL STENT INSERTION
     Route: 065
  7. REOPRO [Suspect]
     Route: 042

REACTIONS (1)
  - HAEMORRHAGIC STROKE [None]
